FAERS Safety Report 26057598 (Version 1)
Quarter: 2025Q4

REPORT INFORMATION
  Report Type: Spontaneous
  Country: US (occurrence: None)
  Receive Date: 20251118
  Receipt Date: 20251118
  Transmission Date: 20260118
  Serious: No
  Sender: UCB
  Company Number: US-UCBSA-2025008582

PATIENT

DRUGS (1)
  1. VIMPAT [Suspect]
     Active Substance: LACOSAMIDE
     Indication: Product used for unknown indication
     Dosage: TAKE 1 TAB (100MG) 1 TIME A DAY IN THE EVENING + TAKE 1 TAB (50MG) 1 TIME A DAY IN THE MORNING

REACTIONS (1)
  - Product use issue [Unknown]
